FAERS Safety Report 7329954-0 (Version None)
Quarter: 2011Q1

REPORT INFORMATION
  Report Type: 
  Country: None (occurrence: None)
  Receive Date: 20110303
  Receipt Date: 20110216
  Transmission Date: 20110831
  Serious: Yes (Other)
  Sender: FDA-Public Use
  Company Number: US-BAYER-201039278NA

PATIENT
  Sex: Female
  Weight: 68 kg

DRUGS (8)
  1. PULMICORT [Concomitant]
  2. UNCODEABLE ^UNCLASSIFIABLE^ [Concomitant]
     Dosage: 25 MG, PRN
     Route: 048
  3. PROMETHAZINE HYDROCHLORIDE [Concomitant]
     Dosage: 25 MG, UNK
  4. ROBINUL [Concomitant]
     Dosage: 2 MG, BID
  5. CARDIZEM LA [Concomitant]
     Dosage: UNK UNK, QD
  6. ULTRACET [Concomitant]
  7. YAZ [Suspect]
     Route: 048
     Dates: start: 20070101, end: 20080101
  8. XANAX [Concomitant]

REACTIONS (5)
  - CHOLECYSTITIS [None]
  - GALLBLADDER PAIN [None]
  - ABDOMINAL PAIN UPPER [None]
  - SALPINGITIS [None]
  - GALLBLADDER CHOLESTEROLOSIS [None]
